FAERS Safety Report 18440489 (Version 2)
Quarter: 2020Q4

REPORT INFORMATION
  Report Type: Spontaneous
  Country: NZ (occurrence: NZ)
  Receive Date: 20201029
  Receipt Date: 20201106
  Transmission Date: 20210114
  Serious: Yes (Other)
  Sender: FDA-Public Use
  Company Number: NZ-PFIZER INC-2020417186

PATIENT
  Age: 26 Year
  Sex: Female
  Weight: 80 kg

DRUGS (5)
  1. SODIUM BICARBONATE. [Concomitant]
     Active Substance: SODIUM BICARBONATE
     Dosage: 8.4% SODIUM BICARBONATE 2 ML
     Route: 008
  2. LIGNOCAINE HCL [Concomitant]
     Active Substance: LIDOCAINE HYDROCHLORIDE
     Indication: ANAESTHESIA
     Dosage: 1.5 % LIGNOCAINE 3 ML IN 7.5 % GLUCOSE
     Route: 008
  3. ADRENALINE HCL [Concomitant]
     Active Substance: EPINEPHRINE HYDROCHLORIDE
     Dosage: 100 UG
     Route: 008
  4. MEPERIDINE HCL [Suspect]
     Active Substance: MEPERIDINE HYDROCHLORIDE
     Indication: ANAESTHESIA
     Dosage: 50 MG, PRESERVATIVE FREE
     Route: 008
  5. ADRENALINE HCL [Concomitant]
     Active Substance: EPINEPHRINE HYDROCHLORIDE
     Indication: ANAESTHESIA
     Dosage: 15 UG
     Route: 008

REACTIONS (2)
  - Staphylococcal abscess [Recovering/Resolving]
  - Extradural abscess [Recovered/Resolved]
